FAERS Safety Report 4598777-8 (Version None)
Quarter: 2005Q1

REPORT INFORMATION
  Report Type: 
  Country: None (occurrence: None)
  Receive Date: 20050301
  Receipt Date: 20050301
  Transmission Date: 20050727
  Serious: Yes (Hospitalization)
  Sender: FDA-Public Use
  Company Number: None

PATIENT
  Sex: Male

DRUGS (10)
  1. ZOSYN [Suspect]
     Indication: PSEUDOMONAS INFECTION
     Dosage: 4.5 GM Q 8 HR IV
     Route: 042
     Dates: start: 20041203, end: 20041206
  2. ZOSYN [Suspect]
     Indication: TRACHEITIS
     Dosage: 4.5 GM Q 8 HR IV
     Route: 042
     Dates: start: 20041203, end: 20041206
  3. APAP TAB [Concomitant]
  4. ALBUTEROL [Concomitant]
  5. ALPRAZOLAM [Concomitant]
  6. FUROSEMIDE [Concomitant]
  7. INSULIN [Concomitant]
  8. IPRATROPIUM BROMIDE [Concomitant]
  9. METOPROLOL [Concomitant]
  10. OMEPRAZOLE [Concomitant]

REACTIONS (1)
  - NEPHRITIS INTERSTITIAL [None]
